FAERS Safety Report 15076489 (Version 1)
Quarter: 2018Q2

REPORT INFORMATION
  Report Type: Report from Study
  Country: US (occurrence: US)
  Receive Date: 20180627
  Receipt Date: 20180627
  Transmission Date: 20180711
  Serious: No
  Sender: FDA-Public Use
  Company Number: PHEH2018US026114

PATIENT
  Age: 7 Year
  Sex: Male

DRUGS (1)
  1. ILARIS [Suspect]
     Active Substance: CANAKINUMAB
     Indication: PRODUCT USED FOR UNKNOWN INDICATION
     Dosage: 200 MG, Q4W
     Route: 058

REACTIONS (5)
  - Crying [Recovered/Resolved]
  - Anxiety [Unknown]
  - Arthralgia [Unknown]
  - Injection site pain [Recovered/Resolved]
  - Constipation [Unknown]
